FAERS Safety Report 9199856 (Version 1)
Quarter: 2013Q1

REPORT INFORMATION
  Report Type: Spontaneous
  Country: ZA (occurrence: ZA)
  Receive Date: 20130329
  Receipt Date: 20130329
  Transmission Date: 20140127
  Serious: Yes (Other)
  Sender: FDA-Public Use
  Company Number: ZA-ABBOTT-13A-143-1070047-00

PATIENT
  Age: 10 Year
  Sex: Female

DRUGS (13)
  1. CLARITHROMYCIN [Suspect]
     Indication: PRODUCT USED FOR UNKNOWN INDICATION
  2. LINEZOLID [Suspect]
     Indication: ANTIRETROVIRAL THERAPY
  3. LINEZOLID [Suspect]
  4. LAMIVUDINE [Suspect]
     Indication: ANTIRETROVIRAL THERAPY
  5. CAPREOMYCIN [Suspect]
     Indication: PRODUCT USED FOR UNKNOWN INDICATION
  6. TERIZIDONE [Suspect]
     Indication: PRODUCT USED FOR UNKNOWN INDICATION
  7. STAVUDINE [Suspect]
     Indication: ANTIRETROVIRAL THERAPY
  8. PYRAZINAMIDE [Suspect]
     Indication: PRODUCT USED FOR UNKNOWN INDICATION
  9. AMINOSALICYLIC ACID [Suspect]
     Indication: PRODUCT USED FOR UNKNOWN INDICATION
  10. ISONIAZIDE [Suspect]
     Indication: PRODUCT USED FOR UNKNOWN INDICATION
  11. EFAVIRENZ [Suspect]
     Indication: ANTIRETROVIRAL THERAPY
  12. OFLOXACIN [Suspect]
     Indication: PRODUCT USED FOR UNKNOWN INDICATION
  13. AMOXICILLIN/CLAVULANIC ACID [Suspect]
     Indication: PRODUCT USED FOR UNKNOWN INDICATION

REACTIONS (1)
  - Neuropathy peripheral [Recovered/Resolved]
